FAERS Safety Report 9781601 (Version 1)
Quarter: 2013Q4

REPORT INFORMATION
  Report Type: Spontaneous
  Country: US (occurrence: US)
  Receive Date: 20131224
  Receipt Date: 20131224
  Transmission Date: 20140711
  Serious: No
  Sender: FDA-Public Use
  Company Number: US-TEVA-446642USA

PATIENT
  Age: 65 Year
  Sex: Male

DRUGS (1)
  1. NUVIGIL [Suspect]
     Dates: start: 2003, end: 2013

REACTIONS (1)
  - Tremor [Unknown]
